FAERS Safety Report 19648956 (Version 2)
Quarter: 2021Q3

REPORT INFORMATION
  Report Type: Spontaneous
  Country: US (occurrence: US)
  Receive Date: 20210803
  Receipt Date: 20210820
  Transmission Date: 20211014
  Serious: No
  Sender: FDA-Public Use
  Company Number: US-GLAXOSMITHKLINE-US2021162427

PATIENT
  Sex: Female

DRUGS (1)
  1. NUCALA [Suspect]
     Active Substance: MEPOLIZUMAB
     Indication: ASTHMA
     Dosage: UNK
     Route: 058
     Dates: start: 20210713

REACTIONS (8)
  - Pain in extremity [Unknown]
  - Myositis [Recovered/Resolved]
  - Musculoskeletal discomfort [Recovered/Resolved]
  - Bursitis [Recovered/Resolved]
  - Muscle spasms [Unknown]
  - Limb discomfort [Recovered/Resolved]
  - Gait disturbance [Unknown]
  - Drug ineffective [Not Recovered/Not Resolved]

NARRATIVE: CASE EVENT DATE: 2021
